FAERS Safety Report 13941369 (Version 1)
Quarter: 2017Q3

REPORT INFORMATION
  Report Type: Report from Study
  Country: IL (occurrence: IL)
  Receive Date: 20170906
  Receipt Date: 20170906
  Transmission Date: 20171127
  Serious: Yes (Other)
  Sender: FDA-Public Use
  Company Number: PHHY2017IL024942

PATIENT
  Age: 62 Year
  Sex: Female

DRUGS (2)
  1. RECLAST [Suspect]
     Active Substance: ZOLEDRONIC ACID
     Indication: PRODUCT USED FOR UNKNOWN INDICATION
     Dosage: UNK
     Route: 042
     Dates: start: 2015, end: 20150829
  2. AFINITOR [Suspect]
     Active Substance: EVEROLIMUS
     Indication: BREAST CANCER
     Dosage: 10 MG, QD
     Route: 048
     Dates: start: 20170206

REACTIONS (17)
  - Blood glucose increased [Not Recovered/Not Resolved]
  - Ageusia [Not Recovered/Not Resolved]
  - Pruritus genital [Recovering/Resolving]
  - Erythema [Recovering/Resolving]
  - Epistaxis [Not Recovered/Not Resolved]
  - Vulvovaginal mycotic infection [Not Recovered/Not Resolved]
  - Lung infection [Unknown]
  - Oral pain [Recovered/Resolved]
  - Dry skin [Not Recovered/Not Resolved]
  - Skin irritation [Recovering/Resolving]
  - Osteonecrosis of jaw [Unknown]
  - Wound [Not Recovered/Not Resolved]
  - Pain in jaw [Not Recovered/Not Resolved]
  - Pain in jaw [Recovered/Resolved]
  - Visual impairment [Unknown]
  - Liver function test increased [Unknown]
  - Cheilitis [Not Recovered/Not Resolved]

NARRATIVE: CASE EVENT DATE: 201607
